FAERS Safety Report 4455918-0 (Version None)
Quarter: 2004Q3

REPORT INFORMATION
  Report Type: 
  Country: None (occurrence: None)
  Receive Date: 20040830
  Receipt Date: 20040622
  Transmission Date: 20050211
  Serious: No
  Sender: FDA-Public Use
  Company Number: 207329

PATIENT
  Age: 61 Year
  Sex: Male

DRUGS (5)
  1. XOLAIR [Suspect]
     Indication: ASTHMA
     Dosage: 300 MG, Q4W, SUBCUTANEOUS
     Route: 058
     Dates: start: 20040301
  2. CYTOTEC [Concomitant]
  3. ZYFLO [Concomitant]
  4. ALBUTEROL (ALBUTEROL SULFATE, ALBUTEROL) [Concomitant]
  5. ATROVEN (IPRATROPIUM BROMIDE) [Concomitant]

REACTIONS (3)
  - ARTHRALGIA [None]
  - NASOPHARYNGITIS [None]
  - SENSATION OF HEAVINESS [None]
